FAERS Safety Report 11542100 (Version 1)
Quarter: 2015Q3

REPORT INFORMATION
  Report Type: Spontaneous
  Country: US (occurrence: US)
  Receive Date: 20150903
  Receipt Date: 20150903
  Transmission Date: 20151125
  Serious: No
  Sender: FDA-Public Use
  Company Number: US-ELI_LILLY_AND_COMPANY-US201204002552

PATIENT
  Age: 63 Year
  Sex: Female

DRUGS (2)
  1. HUMALOG [Suspect]
     Active Substance: INSULIN LISPRO
     Indication: DIABETES MELLITUS
     Dosage: UNK UNK, PRN
     Dates: start: 201201
  2. LANTUS [Concomitant]
     Active Substance: INSULIN GLARGINE
     Dosage: UNK, EACH EVENING

REACTIONS (5)
  - Paraesthesia oral [Unknown]
  - Cataract [Unknown]
  - Lip dry [Recovering/Resolving]
  - Dry mouth [Unknown]
  - Hypogeusia [Unknown]

NARRATIVE: CASE EVENT DATE: 201201
